FAERS Safety Report 7532428-5 (Version None)
Quarter: 2011Q2

REPORT INFORMATION
  Report Type: 
  Country: None (occurrence: None)
  Receive Date: 20110608
  Receipt Date: 20110601
  Transmission Date: 20111010
  Serious: Yes (Other)
  Sender: FDA-Public Use
  Company Number: DE-PFIZER INC-2011118416

PATIENT
  Age: 77 Year
  Sex: Female

DRUGS (1)
  1. REVATIO [Suspect]
     Indication: PULMONARY ARTERIAL HYPERTENSION
     Dosage: UNK

REACTIONS (4)
  - HIGH DENSITY LIPOPROTEIN INCREASED [None]
  - CONFUSIONAL STATE [None]
  - DEMENTIA [None]
  - LOW DENSITY LIPOPROTEIN INCREASED [None]
